FAERS Safety Report 6474433-6 (Version None)
Quarter: 2009Q4

REPORT INFORMATION
  Report Type: 
  Country: None (occurrence: None)
  Receive Date: 20091204
  Receipt Date: 20091123
  Transmission Date: 20100525
  Serious: Yes (Hospitalization, Other)
  Sender: FDA-Public Use
  Company Number: US-ELI_LILLY_AND_COMPANY-US200911005357

PATIENT
  Sex: Male

DRUGS (4)
  1. HUMALOG [Suspect]
     Dosage: UNK, AS NEEDED
  2. HUMALOG [Suspect]
     Dosage: 60 U, DAILY (1/D)
  3. LANTUS [Concomitant]
  4. ACTOS [Concomitant]

REACTIONS (18)
  - ASTHENIA [None]
  - BLOOD GLUCOSE DECREASED [None]
  - BLOOD GLUCOSE FLUCTUATION [None]
  - BLOOD GLUCOSE INCREASED [None]
  - BLOOD POTASSIUM DECREASED [None]
  - BLOOD SODIUM DECREASED [None]
  - CHEST PAIN [None]
  - DEHYDRATION [None]
  - EYE DISORDER [None]
  - EYE HAEMORRHAGE [None]
  - GENERAL PHYSICAL HEALTH DETERIORATION [None]
  - INFLUENZA LIKE ILLNESS [None]
  - INSULIN RESISTANCE [None]
  - MALAISE [None]
  - OXYGEN CONSUMPTION DECREASED [None]
  - RETINAL DETACHMENT [None]
  - VISUAL IMPAIRMENT [None]
  - VOMITING [None]
